FAERS Safety Report 4351484-9 (Version None)
Quarter: 2004Q2

REPORT INFORMATION
  Report Type: 
  Country: None (occurrence: None)
  Receive Date: 20040428
  Receipt Date: 20040413
  Transmission Date: 20050107
  Serious: Yes (Other)
  Sender: FDA-Public Use
  Company Number: USA040464463

PATIENT
  Age: 67 Year
  Sex: Female

DRUGS (4)
  1. EVISTA [Suspect]
     Indication: OSTEOPOROSIS
     Dosage: 60 MG/ 1 DAY
     Dates: start: 20010201
  2. CALCIUM [Concomitant]
  3. VITAMIN D [Concomitant]
  4. ASPIRIN [Concomitant]

REACTIONS (23)
  - ABDOMINAL HERNIA [None]
  - ARTHRITIS [None]
  - CARDIAC DISORDER [None]
  - CARDIAC VENTRICULAR DISORDER [None]
  - CARDIOMEGALY [None]
  - CEREBROVASCULAR ACCIDENT [None]
  - CHRONIC OBSTRUCTIVE AIRWAYS DISEASE [None]
  - COMPRESSION FRACTURE [None]
  - DEAFNESS UNILATERAL [None]
  - DIZZINESS [None]
  - FEELING ABNORMAL [None]
  - GAIT DISTURBANCE [None]
  - JOINT SWELLING [None]
  - MUSCLE CRAMP [None]
  - MYOCARDIAL INFARCTION [None]
  - NOSOCOMIAL INFECTION [None]
  - OEDEMA PERIPHERAL [None]
  - PAIN IN EXTREMITY [None]
  - POST PROCEDURAL PAIN [None]
  - RENAL DISORDER [None]
  - SPINAL FRACTURE [None]
  - THROMBOSIS [None]
  - URETERAL DISORDER [None]
